FAERS Safety Report 6496459-9 (Version None)
Quarter: 2009Q4

REPORT INFORMATION
  Report Type: 
  Country: None (occurrence: None)
  Receive Date: 20091210
  Receipt Date: 20091127
  Transmission Date: 20100525
  Serious: Yes (Hospitalization, Other)
  Sender: FDA-Public Use
  Company Number: 8055042

PATIENT
  Sex: Female
  Weight: 72 kg

DRUGS (1)
  1. KEPPRA [Suspect]
     Indication: EPILEPSY
     Dosage: (500 MG BID ORAL)
     Route: 048
     Dates: start: 20091028, end: 20091120

REACTIONS (3)
  - AGGRESSION [None]
  - IRRITABILITY [None]
  - SELF-INJURIOUS IDEATION [None]
